FAERS Safety Report 21421589 (Version 1)
Quarter: 2022Q4

REPORT INFORMATION
  Report Type: Spontaneous
  Country: DK (occurrence: DK)
  Receive Date: 20221007
  Receipt Date: 20221007
  Transmission Date: 20230113
  Serious: Yes (Death, Hospitalization)
  Sender: FDA-Public Use
  Company Number: None

PATIENT
  Age: 54 Year
  Sex: Female

DRUGS (5)
  1. KEYTRUDA [Suspect]
     Active Substance: PEMBROLIZUMAB
     Indication: Non-small cell lung cancer metastatic
     Dosage: STRENGTH: 25 MG/ML, DOSAGE: 175 MG GIVEN UNKNOWN DOSAGE INTERVAL.
     Dates: start: 20220614, end: 20220822
  2. CARBOPLATIN [Suspect]
     Active Substance: CARBOPLATIN
     Indication: Non-small cell lung cancer metastatic
     Dosage: STRENGTH: 10 MG/ML DOSAGE: 680 MG GIVEN IN UNKNOWN DOSAGE INTERVAL, 3 SERIES WAS GIVEN.
     Dates: start: 20220614, end: 20220726
  3. PEMETREXED [Suspect]
     Active Substance: PEMETREXED
     Indication: Non-small cell lung cancer metastatic
     Dosage: STRENGTH: UNKNOWN
     Route: 042
     Dates: start: 20220822, end: 20220822
  4. PEMETREXED [Suspect]
     Active Substance: PEMETREXED
     Indication: Non-small cell lung cancer metastatic
     Dosage: STRENGTH: UNKNOWN, DOSAGE: 1000 MG IN UNKNOWN DOSAGE INTERVAL.
     Dates: start: 20220614, end: 20220822
  5. PREDNISOLONE [Concomitant]
     Active Substance: PREDNISOLONE
     Indication: Hormone therapy

REACTIONS (9)
  - Pancytopenia [Fatal]
  - Oral fungal infection [Fatal]
  - Infection [Fatal]
  - Intestinal haemorrhage [Fatal]
  - General physical health deterioration [Fatal]
  - Renal failure [Fatal]
  - Mucosal inflammation [Fatal]
  - Nausea [Fatal]
  - Vomiting [Fatal]

NARRATIVE: CASE EVENT DATE: 20220101
